FAERS Safety Report 14738536 (Version 7)
Quarter: 2018Q4

REPORT INFORMATION
  Report Type: Report from Study
  Country: US (occurrence: US)
  Receive Date: 20180409
  Receipt Date: 20181221
  Transmission Date: 20190204
  Serious: Yes (Hospitalization, Other)
  Sender: FDA-Public Use
  Company Number: US-ACTELION-A-US2017-163581

PATIENT
  Age: 66 Year
  Sex: Male
  Weight: 71.2 kg

DRUGS (15)
  1. UPTRAVI [Suspect]
     Active Substance: SELEXIPAG
     Indication: PULMONARY ARTERIAL HYPERTENSION
     Dosage: 1600 MCG, BID
     Route: 048
  2. XARELTO [Concomitant]
     Active Substance: RIVAROXABAN
  3. TUDORZA PRESSAIR [Concomitant]
     Active Substance: ACLIDINIUM BROMIDE
     Dosage: UNK
     Dates: start: 20180214
  4. TIKOSYN [Concomitant]
     Active Substance: DOFETILIDE
     Dosage: UNK
     Dates: start: 20141217
  5. ADCIRCA [Concomitant]
     Active Substance: TADALAFIL
     Dosage: 20 MG, QD
  6. ELIQUIS [Concomitant]
     Active Substance: APIXABAN
     Dosage: UNK
     Dates: start: 20141217
  7. FUROSEMIDE. [Concomitant]
     Active Substance: FUROSEMIDE
     Dosage: UNK
     Dates: start: 20141217
  8. ZYRTEC [Concomitant]
     Active Substance: CETIRIZINE HYDROCHLORIDE
     Dosage: UNK
     Dates: start: 20140530
  9. SIMBRINZA [Concomitant]
     Active Substance: BRIMONIDINE TARTRATE\BRINZOLAMIDE
     Dosage: UNK
     Dates: start: 20180511
  10. UPTRAVI [Suspect]
     Active Substance: SELEXIPAG
     Dosage: 1400 MCG, BID
     Route: 048
     Dates: start: 20180214, end: 20180808
  11. UPTRAVI [Suspect]
     Active Substance: SELEXIPAG
     Dosage: 1200 MCG, BID
     Route: 048
  12. ADCIRCA [Concomitant]
     Active Substance: TADALAFIL
     Dosage: 40 MG, QD
  13. OPSUMIT [Suspect]
     Active Substance: MACITENTAN
     Indication: PULMONARY ARTERIAL HYPERTENSION
     Dosage: 10 MG, QD
     Route: 048
     Dates: start: 20170807
  14. UPTRAVI [Suspect]
     Active Substance: SELEXIPAG
     Dosage: UNK
     Route: 048
     Dates: start: 20171108
  15. XALATAN [Concomitant]
     Active Substance: LATANOPROST
     Dosage: UNK, 0.005%
     Dates: start: 20180511

REACTIONS (28)
  - Weight decreased [Unknown]
  - Unevaluable event [Recovering/Resolving]
  - Eye haemorrhage [Unknown]
  - Oxygen saturation decreased [Unknown]
  - Flushing [Recovering/Resolving]
  - Respiratory failure [Recovered/Resolved with Sequelae]
  - Condition aggravated [Unknown]
  - Jaw disorder [Unknown]
  - Pain in jaw [Unknown]
  - Fatigue [Unknown]
  - Nasal oedema [Unknown]
  - Blood pressure decreased [Unknown]
  - Hypercapnia [Unknown]
  - Lung disorder [Unknown]
  - Blood bicarbonate increased [Unknown]
  - Lethargy [Unknown]
  - Headache [Unknown]
  - Hypotension [Unknown]
  - Malaise [Unknown]
  - Asthenia [Unknown]
  - Therapy non-responder [Unknown]
  - Hypoxia [Unknown]
  - Dyspnoea [Unknown]
  - Balance disorder [Unknown]
  - Cardiac rehabilitation therapy [Unknown]
  - Pulmonary hypertension [Recovering/Resolving]
  - Diarrhoea [Recovered/Resolved]
  - Decreased appetite [Unknown]

NARRATIVE: CASE EVENT DATE: 20180131
